FAERS Safety Report 24746142 (Version 5)
Quarter: 2025Q1

REPORT INFORMATION
  Report Type: Spontaneous
  Country: CZ (occurrence: CZ)
  Receive Date: 20241218
  Receipt Date: 20250206
  Transmission Date: 20250409
  Serious: No
  Sender: ABBVIE
  Company Number: CZ-SA-2024SA361168

PATIENT
  Age: 18 Year
  Sex: Female

DRUGS (17)
  1. VENETOCLAX [Suspect]
     Active Substance: VENETOCLAX
     Indication: Acute undifferentiated leukaemia
     Route: 048
     Dates: start: 2024
  2. FOSFOMYCIN [Concomitant]
     Active Substance: FOSFOMYCIN
     Indication: Evidence based treatment
     Route: 065
  3. AMIKACIN [Concomitant]
     Active Substance: AMIKACIN
     Indication: Evidence based treatment
     Route: 065
  4. HYDROXYUREA [Concomitant]
     Active Substance: HYDROXYUREA
     Indication: Hyperleukocytosis
     Route: 065
  5. CYTARABINE [Suspect]
     Active Substance: CYTARABINE
     Indication: Acute undifferentiated leukaemia
     Route: 065
     Dates: start: 2024
  6. IDARUBICIN [Suspect]
     Active Substance: IDARUBICIN
     Indication: Acute undifferentiated leukaemia
     Route: 065
  7. DAUNORUBICIN [Suspect]
     Active Substance: DAUNORUBICIN
     Indication: Acute undifferentiated leukaemia
     Route: 065
     Dates: start: 2024
  8. POSACONAZOLE [Concomitant]
     Active Substance: POSACONAZOLE
     Indication: Antifungal prophylaxis
     Route: 065
     Dates: start: 2024
  9. FLUDARABINE [Suspect]
     Active Substance: FLUDARABINE PHOSPHATE
     Indication: Acute undifferentiated leukaemia
     Dosage: STARTED ON DAY 25
     Route: 065
  10. VANCOMYCIN [Concomitant]
     Active Substance: VANCOMYCIN
     Indication: Febrile neutropenia
     Route: 065
  11. PIPERACILLIN AND TAZOBACTAM [Concomitant]
     Active Substance: PIPERACILLIN SODIUM\TAZOBACTAM SODIUM
     Indication: Drug therapy
     Route: 065
  12. AVIBACTAM SODIUM\CEFTAZIDIME [Concomitant]
     Active Substance: AVIBACTAM SODIUM\CEFTAZIDIME
     Indication: Proctalgia
     Route: 065
  13. LINEZOLID [Concomitant]
     Active Substance: LINEZOLID
     Indication: Proctalgia
     Route: 065
  14. FENTANYL [Concomitant]
     Active Substance: FENTANYL
     Indication: Proctalgia
     Route: 065
  15. DICLOFENAC [Concomitant]
     Active Substance: DICLOFENAC
     Indication: Analgesic therapy
     Route: 042
  16. DICLOFENAC [Concomitant]
     Active Substance: DICLOFENAC
     Indication: Analgesic therapy
     Route: 065
  17. COLISTIMETHATE SODIUM [Concomitant]
     Active Substance: COLISTIMETHATE SODIUM
     Indication: Proctalgia
     Route: 065

REACTIONS (1)
  - Neutropenia [Recovered/Resolved]
